FAERS Safety Report 6258931-6 (Version None)
Quarter: 2009Q3

REPORT INFORMATION
  Report Type: 
  Country: None (occurrence: None)
  Receive Date: 20090707
  Receipt Date: 20090702
  Transmission Date: 20100115
  Serious: Yes (Death, Hospitalization)
  Sender: FDA-Public Use
  Company Number: GB-ABBOTT-09P-167-0583389-00

PATIENT
  Sex: Female

DRUGS (4)
  1. HUMIRA [Suspect]
     Indication: ANKYLOSING SPONDYLITIS
     Route: 058
     Dates: start: 20060921
  2. METFORMIN [Concomitant]
     Indication: DIABETES MELLITUS
  3. UNSPECIFIED [Concomitant]
     Indication: BLOOD PRESSURE
  4. UNSPECIFIED [Concomitant]
     Indication: BLOOD CHOLESTEROL INCREASED

REACTIONS (11)
  - ABDOMINAL DISCOMFORT [None]
  - ABDOMINAL HERNIA [None]
  - BREAST MASS [None]
  - ENDOMETRIAL CANCER [None]
  - IRON DEFICIENCY ANAEMIA [None]
  - METASTASES TO BONE [None]
  - PELVIC MASS [None]
  - POSTMENOPAUSAL HAEMORRHAGE [None]
  - RECTAL HAEMORRHAGE [None]
  - SQUAMOUS CELL CARCINOMA [None]
  - WEIGHT DECREASED [None]
